FAERS Safety Report 11826337 (Version 1)
Quarter: 2015Q4

REPORT INFORMATION
  Report Type: Spontaneous
  Country: US (occurrence: US)
  Receive Date: 20151211
  Receipt Date: 20151211
  Transmission Date: 20160305
  Serious: No
  Sender: FDA-Public Use
  Company Number: US-PFIZER INC-2015403578

PATIENT
  Age: 5 Year
  Sex: Female
  Weight: 29 kg

DRUGS (1)
  1. ZITHROMAX [Suspect]
     Active Substance: AZITHROMYCIN DIHYDRATE
     Dosage: UNK

REACTIONS (4)
  - Reaction to drug excipients [Not Recovered/Not Resolved]
  - Urticaria [Unknown]
  - Drug hypersensitivity [Not Recovered/Not Resolved]
  - Oedema [Unknown]
